FAERS Safety Report 23662056 (Version 1)
Quarter: 2024Q1

REPORT INFORMATION
  Report Type: Report from Study
  Country: FR (occurrence: FR)
  Receive Date: 20240322
  Receipt Date: 20240322
  Transmission Date: 20240410
  Serious: Yes (Hospitalization)
  Sender: FDA-Public Use
  Company Number: FR-NAPPMUNDI-GBR-2023-0112653

PATIENT
  Age: 28 Year
  Sex: Female
  Weight: 36 kg

DRUGS (12)
  1. POSACONAZOLE [Suspect]
     Active Substance: POSACONAZOLE
     Indication: Bronchopulmonary aspergillosis
     Dosage: 300 MILLIGRAM
     Route: 065
     Dates: start: 202309
  2. REZAFUNGIN ACETATE [Suspect]
     Active Substance: REZAFUNGIN ACETATE
     Indication: Bronchopulmonary aspergillosis
     Dosage: 400 MILLIGRAM, IV OVER 1 HOUR
     Route: 042
     Dates: start: 20231117
  3. REZAFUNGIN ACETATE [Suspect]
     Active Substance: REZAFUNGIN ACETATE
     Dosage: 400MG IV OVER 1 HOUR
     Route: 042
  4. REZAFUNGIN ACETATE [Suspect]
     Active Substance: REZAFUNGIN ACETATE
     Dosage: 200MG IV OVER 1 HOUR (INFUSION TIME 2H)
     Route: 042
  5. ANIFROLUMAB [Suspect]
     Active Substance: ANIFROLUMAB
     Indication: Autoinflammatory disease
     Dosage: UNK
     Route: 065
     Dates: start: 20240223
  6. ANIFROLUMAB [Suspect]
     Active Substance: ANIFROLUMAB
     Dosage: UNK FIRST PERFUSION
     Route: 065
     Dates: start: 20240125
  7. RAMIPRIL [Concomitant]
     Active Substance: RAMIPRIL
     Indication: Product used for unknown indication
     Dosage: UNK
     Route: 065
     Dates: start: 202402
  8. DAPTOMYCIN [Concomitant]
     Active Substance: DAPTOMYCIN
     Indication: Infection
     Dosage: UNK
     Route: 065
  9. AMBISOME [Concomitant]
     Active Substance: AMPHOTERICIN B
     Indication: Product used for unknown indication
     Dosage: UNK
     Route: 065
     Dates: start: 20240208, end: 20240219
  10. TEDIZOLID [Concomitant]
     Active Substance: TEDIZOLID
     Indication: Infection
     Dosage: UNK
     Route: 065
     Dates: start: 20240215
  11. PIPERACILLIN SODIUM\TAZOBACTAM SODIUM [Concomitant]
     Active Substance: PIPERACILLIN SODIUM\TAZOBACTAM SODIUM
     Indication: Pneumonia
     Dosage: UNK STARTED AFTER PERFUSION
     Route: 065
  12. DALBAVANCIN [Concomitant]
     Active Substance: DALBAVANCIN
     Indication: Infection
     Dosage: UNK
     Route: 065
     Dates: start: 20240220

REACTIONS (8)
  - Haemoptysis [Recovered/Resolved]
  - Ataxia [Unknown]
  - Flushing [Unknown]
  - Pruritus [Recovered/Resolved]
  - Pyrexia [Recovered/Resolved]
  - Nausea [Recovered/Resolved]
  - Dizziness [Not Recovered/Not Resolved]
  - Alopecia [Unknown]

NARRATIVE: CASE EVENT DATE: 20231117
